FAERS Safety Report 14067988 (Version 1)
Quarter: 2017Q4

REPORT INFORMATION
  Report Type: Spontaneous
  Country: FR (occurrence: FR)
  Receive Date: 20171010
  Receipt Date: 20171010
  Transmission Date: 20180321
  Serious: Yes (Hospitalization)
  Sender: FDA-Public Use
  Company Number: FR-ROCHE-2002812

PATIENT
  Age: 77 Year
  Sex: Male

DRUGS (1)
  1. ROACTEMRA [Suspect]
     Active Substance: TOCILIZUMAB
     Indication: TEMPORAL ARTERITIS
     Route: 041
     Dates: start: 20170623

REACTIONS (3)
  - Intentional product use issue [Unknown]
  - Urticarial vasculitis [Unknown]
  - Off label use [Unknown]

NARRATIVE: CASE EVENT DATE: 20170811
